FAERS Safety Report 5948608-6 (Version None)
Quarter: 2008Q4

REPORT INFORMATION
  Report Type: 
  Country: None (occurrence: None)
  Receive Date: 20081111
  Receipt Date: 20081031
  Transmission Date: 20090506
  Serious: Yes (Hospitalization)
  Sender: FDA-Public Use
  Company Number: JP-MERCK-0811USA01090

PATIENT
  Age: 51 Year
  Sex: Female

DRUGS (3)
  1. DECADRON [Suspect]
     Indication: HEPATOTOXICITY
     Route: 048
  2. DECADRON [Suspect]
     Route: 048
  3. DECADRON [Suspect]
     Indication: HEPATOTOXICITY
     Route: 042

REACTIONS (1)
  - DRUG INEFFECTIVE [None]
